FAERS Safety Report 10910482 (Version 2)
Quarter: 2016Q1

REPORT INFORMATION
  Report Type: Spontaneous
  Country: US (occurrence: US)
  Receive Date: 20150312
  Receipt Date: 20160322
  Transmission Date: 20160525
  Serious: No
  Sender: FDA-Public Use
  Company Number: US-SA-2014SA127683

PATIENT
  Age: 63 Year
  Sex: Female
  Weight: 77 kg

DRUGS (3)
  1. NASACORT ALLERGY 24HR [Suspect]
     Active Substance: TRIAMCINOLONE ACETONIDE
     Indication: NASAL CONGESTION
     Dosage: DOSAGE FORM: NASAL SPRAY?FREQUENCY: SPRAY IN BOTH NOSTRILS DAILY
     Route: 045
     Dates: start: 201407, end: 201408
  2. NASACORT ALLERGY 24HR [Suspect]
     Active Substance: TRIAMCINOLONE ACETONIDE
     Indication: ALLERGIC SINUSITIS
     Dosage: DOSAGE FORM: NASAL SPRAY?FREQUENCY: SPRAY IN BOTH NOSTRILS DAILY
     Route: 045
     Dates: start: 201407, end: 201408
  3. SYNTHROID [Concomitant]
     Active Substance: LEVOTHYROXINE SODIUM
     Indication: THYROID DISORDER
     Route: 065
     Dates: start: 1989

REACTIONS (3)
  - Cheilitis [Recovered/Resolved]
  - Chapped lips [Recovered/Resolved]
  - Lip exfoliation [Unknown]
